FAERS Safety Report 6401936-2 (Version None)
Quarter: 2009Q4

REPORT INFORMATION
  Report Type: 
  Country: None (occurrence: None)
  Receive Date: 20091015
  Receipt Date: 20091006
  Transmission Date: 20100525
  Serious: Yes (Death, Hospitalization)
  Sender: FDA-Public Use
  Company Number: A0810061A

PATIENT
  Age: 60 Year
  Sex: Female
  Weight: 90.9 kg

DRUGS (2)
  1. AVANDIA [Suspect]
     Route: 048
     Dates: start: 20020101, end: 20071101
  2. AVANDAMET [Suspect]
     Route: 048

REACTIONS (5)
  - ACUTE CORONARY SYNDROME [None]
  - ACUTE RESPIRATORY DISTRESS SYNDROME [None]
  - ESCHERICHIA INFECTION [None]
  - MULTI-ORGAN FAILURE [None]
  - UROSEPSIS [None]
